FAERS Safety Report 9925990 (Version 1)
Quarter: 2014Q1

REPORT INFORMATION
  Report Type: Spontaneous
  Country: US (occurrence: US)
  Receive Date: 20140226
  Receipt Date: 20140226
  Transmission Date: 20141002
  Serious: No
  Sender: FDA-Public Use
  Company Number: US-BRACCO-009810

PATIENT
  Age: 20 Year
  Sex: Female

DRUGS (1)
  1. ISOVUE 300 [Suspect]
     Indication: COMPUTERISED TOMOGRAM
     Dosage: LEFT ANTECUBITAL
     Route: 042
     Dates: start: 20130716, end: 20130716

REACTIONS (5)
  - Head discomfort [Unknown]
  - Slow speech [Unknown]
  - Dizziness [Unknown]
  - Urticaria [Unknown]
  - Erythema [Unknown]
